FAERS Safety Report 9550717 (Version 1)
Quarter: 2013Q3

REPORT INFORMATION
  Report Type: Spontaneous
  Country: US (occurrence: US)
  Receive Date: 20130924
  Receipt Date: 20130924
  Transmission Date: 20140515
  Serious: No
  Sender: FDA-Public Use
  Company Number: US-SANOFI-AVENTIS-2013SA019906

PATIENT
  Age: 62 Year
  Sex: Female
  Weight: 77 kg

DRUGS (15)
  1. AUBAGIO [Suspect]
     Indication: MULTIPLE SCLEROSIS
     Dosage: DOSE:14 UNIT(S)
     Route: 048
     Dates: start: 20130102, end: 20130203
  2. TRAMADOL [Concomitant]
     Route: 048
  3. LEVOTHYROXINE [Concomitant]
     Route: 048
  4. ASPIRIN [Concomitant]
     Route: 048
  5. FINASTERIDE [Concomitant]
     Route: 048
  6. CENTRUM [Concomitant]
     Route: 048
  7. BACLOFEN [Concomitant]
     Route: 048
  8. FLOMAX [Concomitant]
     Route: 048
  9. ATENOLOL [Concomitant]
     Route: 048
  10. CELEBREX [Concomitant]
     Route: 048
  11. NEXIUM [Concomitant]
  12. CIALIS ^LILLY^ [Concomitant]
     Route: 048
  13. VENLAFAXINE [Concomitant]
     Route: 048
  14. LIPITOR [Concomitant]
     Route: 048
  15. GABAPENTIN [Concomitant]
     Route: 048

REACTIONS (3)
  - Vomiting [Unknown]
  - Nausea [Not Recovered/Not Resolved]
  - Retching [Not Recovered/Not Resolved]
